FAERS Safety Report 22017477 (Version 1)
Quarter: 2023Q1

REPORT INFORMATION
  Report Type: Spontaneous
  Country: US (occurrence: None)
  Receive Date: 20230217
  Receipt Date: 20230217
  Transmission Date: 20230418
  Serious: No
  Sender: FDA-Public Use
  Company Number: None

PATIENT
  Age: 71 Year
  Sex: Male
  Weight: 62.23 kg

DRUGS (12)
  1. IBRANCE [Suspect]
     Active Substance: PALBOCICLIB
     Indication: Bone cancer
     Dosage: FREQUENCY : DAILY;?
     Route: 048
  2. IBRANCE [Suspect]
     Active Substance: PALBOCICLIB
     Indication: External ear neoplasm malignant
  3. ASPIR-LOW [Concomitant]
  4. ATORVASTATIN CALCIUM [Concomitant]
  5. AUGMENTIN [Concomitant]
  6. CELEBREX [Concomitant]
  7. CITALOPRAM HYDROBROMIDE [Concomitant]
  8. GABAPENTIN [Concomitant]
  9. LOSARTAN POTASSIUM [Concomitant]
  10. TRAMADOI HCI [Concomitant]
  11. VITAMIN D2 [Concomitant]
  12. TYLENOL [Concomitant]

REACTIONS (4)
  - External ear neoplasm malignant [None]
  - Bone cancer [None]
  - Malignant neoplasm progression [None]
  - Therapy cessation [None]
